FAERS Safety Report 9316151 (Version 1)
Quarter: 2013Q2

REPORT INFORMATION
  Report Type: Spontaneous
  Country: US (occurrence: None)
  Receive Date: 20130522
  Receipt Date: 20130522
  Transmission Date: 20140414
  Serious: Yes (Other)
  Sender: FDA-Public Use
  Company Number: DOXY20130003

PATIENT
  Age: 82 Year
  Sex: Female

DRUGS (1)
  1. DOXYCYCLINE HYCLATE [Suspect]
     Indication: URINARY TRACT INFECTION
     Dosage: 2 IN 1 D
     Route: 048

REACTIONS (3)
  - Gastrointestinal necrosis [None]
  - Gastric mucosa erythema [None]
  - Gastric mucosal lesion [None]
